FAERS Safety Report 10086217 (Version 1)
Quarter: 2014Q2

REPORT INFORMATION
  Report Type: Spontaneous
  Country: GB (occurrence: GB)
  Receive Date: 20140418
  Receipt Date: 20140418
  Transmission Date: 20141212
  Serious: Yes (Hospitalization)
  Sender: FDA-Public Use
  Company Number: GB-TEVA-475558ISR

PATIENT
  Age: 80 Year
  Sex: Male
  Weight: 85.72 kg

DRUGS (1)
  1. TRAMADOL [Suspect]
     Indication: ANALGESIC THERAPY
     Route: 048

REACTIONS (2)
  - Hallucination [Recovered/Resolved]
  - Confusional state [Recovered/Resolved]
